FAERS Safety Report 9549291 (Version 1)
Quarter: 2013Q3

REPORT INFORMATION
  Report Type: Spontaneous
  Country: US (occurrence: US)
  Receive Date: 20130924
  Receipt Date: 20130924
  Transmission Date: 20140515
  Serious: Yes (Hospitalization, Disabling)
  Sender: FDA-Public Use
  Company Number: US-MERCK-1210USA000809

PATIENT
  Sex: Female

DRUGS (9)
  1. JANUVIA [Suspect]
     Dosage: 100 MG, QD
     Route: 048
  2. DEROXAT [Suspect]
     Dosage: 20 MG, QD
     Route: 048
  3. PARIET [Suspect]
     Dosage: 20 MG, QD
     Route: 048
  4. LEVOTHYROX [Suspect]
     Dosage: 75 MICROGRAM, QD
     Route: 048
  5. CARDENSIEL [Suspect]
     Dosage: 5 MG, QD
     Route: 048
  6. TAREG [Suspect]
     Dosage: 80 MG, QD
     Route: 048
  7. KARDEGIC [Suspect]
     Dosage: 1 DF, QD
     Route: 048
  8. TAHOR [Suspect]
     Dosage: 40 MG, QD
     Route: 048
  9. METFORMIN [Suspect]
     Dosage: 500 MG, BID
     Route: 048

REACTIONS (7)
  - Blood creatine phosphokinase increased [Unknown]
  - Rhabdomyolysis [Unknown]
  - Hyperhidrosis [Unknown]
  - Weight increased [Unknown]
  - General physical health deterioration [Unknown]
  - Myalgia [Unknown]
  - Hypoaesthesia [Unknown]
